FAERS Safety Report 13543015 (Version 1)
Quarter: 2017Q2

REPORT INFORMATION
  Report Type: Spontaneous
  Country: CO (occurrence: CO)
  Receive Date: 20170513
  Receipt Date: 20170513
  Transmission Date: 20170830
  Serious: Yes (Life-Threatening, Other)
  Sender: FDA-Public Use
  Company Number: CO-ACCORD-051358

PATIENT
  Age: 56 Year
  Sex: Male

DRUGS (2)
  1. TACROLIMUS. [Suspect]
     Active Substance: TACROLIMUS
     Indication: PRODUCT USED FOR UNKNOWN INDICATION
  2. CICLOSPORIN [Suspect]
     Active Substance: CYCLOSPORINE
     Indication: PRODUCT USED FOR UNKNOWN INDICATION

REACTIONS (6)
  - Proteus infection [Recovered/Resolved]
  - Depression [Recovered/Resolved]
  - Abnormal behaviour [Recovered/Resolved]
  - Leukoencephalopathy [Recovered/Resolved]
  - Toxicity to various agents [Recovered/Resolved]
  - Coronary artery occlusion [Recovered/Resolved]
